FAERS Safety Report 20812558 (Version 1)
Quarter: 2022Q2

REPORT INFORMATION
  Report Type: Spontaneous
  Country: FR (occurrence: FR)
  Receive Date: 20220511
  Receipt Date: 20220511
  Transmission Date: 20220721
  Serious: Yes (Life-Threatening, Hospitalization)
  Sender: FDA-Public Use
  Company Number: None

PATIENT
  Age: 75 Year
  Sex: Female
  Weight: 78 kg

DRUGS (3)
  1. ZOPICLONE [Suspect]
     Active Substance: ZOPICLONE
     Indication: Suicide attempt
     Dosage: 14 TABLETS OF 7.5 MG, UNIT DOSE: 105 MG, DURATION : 1 DAY
     Route: 048
     Dates: start: 20220331, end: 20220331
  2. LAMOTRIGINE [Suspect]
     Active Substance: LAMOTRIGINE
     Indication: Suicide attempt
     Dosage: 20 TABLETS OF 100 MG + 20 TABLETS OF 50 MG, DURATION : 1 DAY, UNIT DOSE: 3000 MG
     Route: 048
     Dates: start: 20220331, end: 20220331
  3. OXAZEPAM [Suspect]
     Active Substance: OXAZEPAM
     Indication: Suicide attempt
     Dosage: 20 TABLETS OF 50 MG, SCORED TABLET, DURATION :1 DAY, UNIT DOSE: 1000 MG
     Route: 048
     Dates: start: 20220331, end: 20220331

REACTIONS (2)
  - Coma [Recovered/Resolved]
  - Toxicity to various agents [Recovered/Resolved]

NARRATIVE: CASE EVENT DATE: 20220331
